FAERS Safety Report 5130705-9 (Version None)
Quarter: 2006Q4

REPORT INFORMATION
  Report Type: 
  Country: None (occurrence: None)
  Receive Date: 20061019
  Receipt Date: 20061010
  Transmission Date: 20070319
  Serious: Yes (Hospitalization)
  Sender: FDA-Public Use
  Company Number: GB-JNJFOC-20060601342

PATIENT
  Sex: Male

DRUGS (7)
  1. RISPERDAL CONSTA [Suspect]
     Route: 030
  2. RISPERDAL CONSTA [Suspect]
     Indication: SCHIZOPHRENIA
     Route: 030
  3. RISPERDAL [Suspect]
     Route: 048
  4. RISPERDAL [Suspect]
     Route: 048
  5. RISPERDAL [Suspect]
     Indication: DRUG USE FOR UNKNOWN INDICATION
     Route: 048
  6. CITALOPRAM [Concomitant]
     Indication: DEPRESSION
     Route: 065
  7. ZOPICLONE [Concomitant]
     Indication: POOR QUALITY SLEEP
     Route: 065

REACTIONS (4)
  - DELINQUENCY [None]
  - DEPRESSION [None]
  - MULTIPLE DRUG OVERDOSE [None]
  - SCHIZOPHRENIA [None]
